FAERS Safety Report 5688330-7 (Version None)
Quarter: 2008Q1

REPORT INFORMATION
  Report Type: 
  Country: None (occurrence: None)
  Receive Date: 20080328
  Receipt Date: 20080328
  Transmission Date: 20080703
  Serious: No
  Sender: FDA-Public Use
  Company Number: None

PATIENT
  Age: 13 Year
  Sex: Male
  Weight: 54.4316 kg

DRUGS (2)
  1. SINGULAIR [Suspect]
     Indication: ASTHMA
     Dosage: 5MG THEN 10MG DAILY PO
     Route: 048
     Dates: start: 20060101, end: 20080327
  2. SINGULAIR [Suspect]
     Indication: HYPERSENSITIVITY
     Dosage: 5MG THEN 10MG DAILY PO
     Route: 048
     Dates: start: 20060101, end: 20080327

REACTIONS (3)
  - ANGER [None]
  - ANXIETY [None]
  - DEAFNESS UNILATERAL [None]
